FAERS Safety Report 8916078 (Version 4)
Quarter: 2014Q3

REPORT INFORMATION
  Report Type: Report from Study
  Country: RU (occurrence: RU)
  Receive Date: 20121119
  Receipt Date: 20140721
  Transmission Date: 20150326
  Serious: Yes (Death, Life-Threatening)
  Sender: FDA-Public Use
  Company Number: RU-TEVA-370945USA

PATIENT
  Age: 65 Year
  Sex: Female
  Weight: 62 kg

DRUGS (9)
  1. CARDIOMAGNYL [Concomitant]
     Active Substance: ASPIRIN\MAGNESIUM HYDROXIDE
     Dates: start: 20121031
  2. CLEXANE [Concomitant]
     Active Substance: ENOXAPARIN SODIUM
     Indication: CARDIAC FAILURE CHRONIC
     Dates: start: 20121029, end: 20121111
  3. QUAMATEL [Concomitant]
     Dates: start: 20121101, end: 20121111
  4. CORDAFLEX [Concomitant]
     Active Substance: NIFEDIPINE
     Indication: HYPERTENSION
     Dates: start: 20121031
  5. ATENOLOL. [Concomitant]
     Active Substance: ATENOLOL
     Indication: HYPERTENSION
     Dates: start: 20121029
  6. LASIX [Concomitant]
     Active Substance: FUROSEMIDE
     Dates: start: 20121030, end: 20121111
  7. CORAXAN [Concomitant]
     Indication: CARDIAC FAILURE CHRONIC
     Dates: start: 20121031, end: 20121111
  8. OBINUTUZUMAB [Suspect]
     Active Substance: OBINUTUZUMAB
     Indication: NON-HODGKIN^S LYMPHOMA
     Route: 042
     Dates: start: 20121018, end: 20121025
  9. BENDAMUSTINE [Suspect]
     Active Substance: BENDAMUSTINE
     Indication: NON-HODGKIN^S LYMPHOMA
     Dosage: UNKNOWN/D
     Route: 042
     Dates: start: 20121018, end: 20121019

REACTIONS (2)
  - Cardiac failure [Not Recovered/Not Resolved]
  - Multi-organ failure [Fatal]

NARRATIVE: CASE EVENT DATE: 20121101
